FAERS Safety Report 8521127-9 (Version None)
Quarter: 2012Q3

REPORT INFORMATION
  Report Type: 
  Country: None (occurrence: None)
  Receive Date: 20120719
  Receipt Date: 20120709
  Transmission Date: 20120928
  Serious: Yes (Hospitalization, Other)
  Sender: FDA-Public Use
  Company Number: US-ELI_LILLY_AND_COMPANY-US201112007298

PATIENT
  Sex: Female

DRUGS (3)
  1. FORTEO [Suspect]
     Indication: OSTEOPOROSIS
     Dosage: 20 UG, QD
     Dates: start: 20110401
  2. FORTEO [Suspect]
     Dosage: 20 UG, QD
  3. FORTEO [Suspect]
     Dosage: 20 UG, QD

REACTIONS (10)
  - ASTHMA [None]
  - PAIN [None]
  - WHITE BLOOD CELL COUNT INCREASED [None]
  - STAPHYLOCOCCAL INFECTION [None]
  - WHITE BLOOD CELL COUNT DECREASED [None]
  - PLATELET COUNT INCREASED [None]
  - CONFUSIONAL STATE [None]
  - FALL [None]
  - INJECTION SITE HAEMATOMA [None]
  - PLATELET COUNT DECREASED [None]
